FAERS Safety Report 5480088-X (Version None)
Quarter: 2007Q4

REPORT INFORMATION
  Report Type: 
  Country: None (occurrence: None)
  Receive Date: 20071008
  Receipt Date: 20070927
  Transmission Date: 20080405
  Serious: Yes (Other)
  Sender: FDA-Public Use
  Company Number: JP-PFIZER INC-2007082672

PATIENT
  Age: 23 Year
  Sex: Female

DRUGS (8)
  1. HALCION [Suspect]
     Indication: INSOMNIA
     Dosage: TEXT:TDD:0.25MG
  2. CERCINE [Suspect]
  3. DEPAKENE [Suspect]
     Route: 048
  4. SEROQUEL [Suspect]
     Route: 048
  5. LEXOTAN [Suspect]
     Route: 048
  6. OMEPRAL [Suspect]
     Route: 048
  7. BUSCOPAN [Suspect]
  8. LAC B [Concomitant]
     Route: 048

REACTIONS (1)
  - ABORTION SPONTANEOUS [None]
